FAERS Safety Report 15602275 (Version 2)
Quarter: 2018Q4

REPORT INFORMATION
  Report Type: Report from Study
  Country: NO (occurrence: NO)
  Receive Date: 20181109
  Receipt Date: 20181221
  Transmission Date: 20190205
  Serious: Yes (Death, Other)
  Sender: FDA-Public Use
  Company Number: NO-TAKEDA-2018TUS032280

PATIENT
  Age: 69 Year
  Sex: Male

DRUGS (6)
  1. CANDESARTAN. [Concomitant]
     Active Substance: CANDESARTAN
     Indication: HYPERTENSION
     Dosage: 32 MG, QD
     Route: 048
  2. BRIGATINIB [Suspect]
     Active Substance: BRIGATINIB
     Indication: LUNG NEOPLASM MALIGNANT
     Dosage: 180 MG, QD
     Route: 048
     Dates: start: 20180429
  3. METOPROLOL. [Concomitant]
     Active Substance: METOPROLOL
     Indication: HYPERTENSION
     Dosage: 50 MG, QD
     Route: 048
  4. FURIX [Concomitant]
     Active Substance: FUROSEMIDE
     Indication: HYPERTENSION
     Dosage: 30 MG, QD
     Route: 048
  5. AMLODIPIN                          /00972401/ [Concomitant]
     Active Substance: AMLODIPINE BESYLATE
     Indication: HYPERTENSION
     Dosage: 5 MG, QD
     Route: 048
  6. ETHYLMORPHINE [Concomitant]
     Active Substance: ETHYLMORPHINE
     Indication: COUGH
     Dosage: 10 ML, UNK
     Route: 048
     Dates: start: 20181105

REACTIONS (1)
  - Cardiac arrest [Fatal]

NARRATIVE: CASE EVENT DATE: 20181106
